FAERS Safety Report 8920402 (Version 1)
Quarter: 2012Q4

REPORT INFORMATION
  Report Type: 
  Country: US (occurrence: US)
  Receive Date: 20121121
  Receipt Date: 20121121
  Transmission Date: 20130627
  Serious: Yes (Other)
  Sender: FDA-Public Use
  Company Number: US-JNJFOC-20121106095

PATIENT
  Sex: Female
  Weight: 81.65 kg

DRUGS (2)
  1. SIMPONI [Suspect]
     Indication: RHEUMATOID ARTHRITIS
     Route: 058
     Dates: start: 201111
  2. MANY OTHER UNSPECIFIED MEDICATIONS [Concomitant]
     Route: 065

REACTIONS (7)
  - Rheumatoid arthritis [Unknown]
  - Crohn^s disease [Unknown]
  - Swelling [Unknown]
  - Pain [Unknown]
  - Device malfunction [Not Recovered/Not Resolved]
  - Erythema [Unknown]
  - Drug dose omission [Not Recovered/Not Resolved]
